FAERS Safety Report 13292822 (Version 2)
Quarter: 2017Q2

REPORT INFORMATION
  Report Type: Spontaneous
  Country: FR (occurrence: FR)
  Receive Date: 20170303
  Receipt Date: 20170605
  Transmission Date: 20170830
  Serious: Yes (Hospitalization)
  Sender: FDA-Public Use
  Company Number: FR-SA-2017SA035347

PATIENT
  Age: 54 Year
  Sex: Female

DRUGS (21)
  1. LOVENOX [Suspect]
     Active Substance: ENOXAPARIN SODIUM
     Indication: THROMBOSIS PROPHYLAXIS
     Route: 058
  2. STILNOX [Suspect]
     Active Substance: ZOLPIDEM TARTRATE
     Indication: INSOMNIA
     Route: 048
  3. CUBICIN [Suspect]
     Active Substance: DAPTOMYCIN
     Indication: BACTERAEMIA
     Route: 042
     Dates: start: 201701
  4. CERNEVIT [Concomitant]
     Active Substance: VITAMINS
  5. AUGMENTIN [Suspect]
     Active Substance: AMOXICILLIN\CLAVULANATE POTASSIUM
     Indication: BACTERAEMIA
     Route: 042
     Dates: start: 201701
  6. ACUPAN [Suspect]
     Active Substance: NEFOPAM HYDROCHLORIDE
     Indication: PAIN
     Route: 042
     Dates: start: 201701
  7. OLIMEL [Concomitant]
     Active Substance: AMINO ACIDS\DEXTROSE\SOYBEAN OIL
  8. PANTOPRAZOLE [Suspect]
     Active Substance: PANTOPRAZOLE
     Indication: GASTROOESOPHAGEAL REFLUX DISEASE
     Route: 048
  9. PARACETAMOL [Suspect]
     Active Substance: ACETAMINOPHEN
     Indication: PAIN
     Route: 048
  10. TRAMADOL. [Suspect]
     Active Substance: TRAMADOL
     Indication: PAIN
     Route: 065
  11. LEVOFLOXACIN. [Concomitant]
     Active Substance: LEVOFLOXACIN
     Dates: start: 201609
  12. PHOCYTAN [Concomitant]
     Active Substance: .ALPHA.-GLUCOSE-1-PHOSPHATE
  13. RIFADINE [Concomitant]
     Active Substance: RIFAMPIN
     Dates: start: 201609
  14. OXYNORM [Suspect]
     Active Substance: OXYCODONE HYDROCHLORIDE
     Indication: PAIN
     Route: 048
     Dates: start: 201701
  15. PHLOROGLUCINOL [Concomitant]
     Active Substance: PHLOROGLUCINOL
     Dosage: 80 MG
  16. FERO GRAD VITAMINE C [Concomitant]
     Active Substance: ASCORBIC ACID\FERROUS SULFATE
     Dosage: VITAMIN C 500
  17. DAPTOMYCIN. [Concomitant]
     Active Substance: DAPTOMYCIN
  18. ZYVOXID [Concomitant]
     Active Substance: LINEZOLID
  19. VENLAFAXINE [Suspect]
     Active Substance: VENLAFAXINE HYDROCHLORIDE
     Indication: MAJOR DEPRESSION
     Dosage: 37.5 MG IN THE MORNING AND 75 MG IN THE EVENING
     Route: 048
  20. MABELIO [Suspect]
     Active Substance: CEFTOBIPROLE
     Indication: BACTERAEMIA
     Route: 042
     Dates: start: 201701, end: 20170130
  21. AMIKACIN MYLAN [Suspect]
     Active Substance: AMIKACIN
     Indication: BACTERAEMIA
     Route: 042
     Dates: start: 201701, end: 20170130

REACTIONS (1)
  - Lymphopenia [Not Recovered/Not Resolved]

NARRATIVE: CASE EVENT DATE: 20170125
